FAERS Safety Report 9166635 (Version 2)
Quarter: 2013Q2

REPORT INFORMATION
  Report Type: Spontaneous
  Country: CH (occurrence: CH)
  Receive Date: 20130315
  Receipt Date: 20130508
  Transmission Date: 20140414
  Serious: Yes (Hospitalization)
  Sender: FDA-Public Use
  Company Number: CH-AMGEN-CHESP2013016394

PATIENT
  Sex: Female
  Weight: 50 kg

DRUGS (11)
  1. XGEVA [Suspect]
     Indication: METASTASES TO LUNG
     Dosage: 120 MG, UNK
     Route: 058
     Dates: start: 20121213, end: 20121213
  2. CALCIUM [Suspect]
     Dosage: UNK UNK, QD
     Route: 042
     Dates: end: 20130117
  3. CALCIUM +D3 [Suspect]
     Indication: HYPOCALCAEMIA
     Dosage: 1000/80
     Route: 048
     Dates: end: 20130117
  4. CARBOPLATIN [Concomitant]
     Indication: SMALL CELL LUNG CANCER
     Dosage: 400 MG, UNK
     Route: 042
     Dates: start: 20130103, end: 20130103
  5. ETOPOSID [Concomitant]
     Indication: SMALL CELL LUNG CANCER
     Dosage: 150 MG D1, 300 MG D2
     Route: 042
     Dates: start: 20130103, end: 20130105
  6. MST                                /00021210/ [Concomitant]
     Route: 048
  7. NOVALGIN                           /00169801/ [Concomitant]
     Route: 048
  8. STILNOX [Concomitant]
  9. PANTOZOL                           /01263204/ [Concomitant]
  10. PASPERTIN                          /00041902/ [Concomitant]
  11. KCL [Concomitant]

REACTIONS (4)
  - Blood calcium decreased [Recovered/Resolved]
  - Paraesthesia [Recovered/Resolved]
  - Hypoaesthesia [Recovered/Resolved]
  - Chvostek^s sign [Recovered/Resolved]
